FAERS Safety Report 5429236-8 (Version None)
Quarter: 2007Q3

REPORT INFORMATION
  Report Type: 
  Country: None (occurrence: None)
  Receive Date: 20070824
  Receipt Date: 20070808
  Transmission Date: 20080115
  Serious: Yes (Hospitalization, Other)
  Sender: FDA-Public Use
  Company Number: 2006JP004575

PATIENT
  Age: 50 Year
  Sex: Female
  Weight: 48.3 kg

DRUGS (84)
  1. PROGRAF [Suspect]
     Indication: RENAL TRANSPLANT
     Dates: start: 20051108
  2. PROGRAF [Suspect]
     Indication: RENAL TRANSPLANT
     Dosage: SEE IMAGE
     Route: 048
     Dates: start: 20051031, end: 20051104
  3. PROGRAF [Suspect]
     Indication: RENAL TRANSPLANT
     Dosage: SEE IMAGE
     Route: 048
     Dates: start: 20051105, end: 20051105
  4. PROGRAF [Suspect]
     Indication: RENAL TRANSPLANT
     Dosage: SEE IMAGE
     Route: 048
     Dates: start: 20051106, end: 20051109
  5. PROGRAF [Suspect]
     Indication: RENAL TRANSPLANT
     Dosage: SEE IMAGE
     Route: 048
     Dates: start: 20051110, end: 20051113
  6. PROGRAF [Suspect]
     Indication: RENAL TRANSPLANT
     Dosage: SEE IMAGE
     Route: 048
     Dates: start: 20051114, end: 20051115
  7. PROGRAF [Suspect]
     Indication: RENAL TRANSPLANT
     Dosage: SEE IMAGE
     Route: 048
     Dates: start: 20051121, end: 20051123
  8. PROGRAF [Suspect]
     Indication: RENAL TRANSPLANT
     Dosage: SEE IMAGE
     Route: 048
     Dates: start: 20051125, end: 20051130
  9. PROGRAF [Suspect]
     Indication: RENAL TRANSPLANT
     Dosage: SEE IMAGE
     Route: 048
     Dates: start: 20051201, end: 20051214
  10. PROGRAF [Suspect]
     Indication: RENAL TRANSPLANT
     Dosage: SEE IMAGE
     Route: 048
     Dates: start: 20051215, end: 20051218
  11. PROGRAF [Suspect]
     Indication: RENAL TRANSPLANT
     Dosage: SEE IMAGE
     Route: 048
     Dates: start: 20051219, end: 20060110
  12. PROGRAF [Suspect]
     Indication: RENAL TRANSPLANT
     Dosage: SEE IMAGE
     Route: 048
     Dates: start: 20060112, end: 20060222
  13. PROGRAF [Suspect]
     Indication: RENAL TRANSPLANT
     Dosage: SEE IMAGE
     Route: 048
     Dates: start: 20060210, end: 20060222
  14. PROGRAF [Suspect]
     Indication: RENAL TRANSPLANT
     Dosage: SEE IMAGE
     Route: 048
     Dates: start: 20060223, end: 20060226
  15. PROGRAF [Suspect]
     Indication: RENAL TRANSPLANT
     Dosage: SEE IMAGE
     Route: 048
     Dates: start: 20060227, end: 20060301
  16. PROGRAF [Suspect]
     Indication: RENAL TRANSPLANT
     Dosage: SEE IMAGE
     Route: 048
     Dates: start: 20060302, end: 20060401
  17. PROGRAF [Suspect]
     Indication: RENAL TRANSPLANT
     Dosage: SEE IMAGE
     Route: 048
     Dates: start: 20060401
  18. PROGRAF [Suspect]
     Indication: RENAL TRANSPLANT
     Dosage: 1.5 MG, 1.5MG, D
     Dates: start: 20051115, end: 20051118
  19. PROGRAF [Suspect]
     Indication: RENAL TRANSPLANT
     Dosage: 1.5 MG, 1.5MG, D
     Dates: start: 20051120, end: 20051120
  20. PREDNISOLONE TAB [Suspect]
     Dosage: SEE IMAGE
     Route: 048
     Dates: start: 20051118, end: 20051119
  21. PREDNISOLONE TAB [Suspect]
     Dosage: SEE IMAGE
     Route: 048
     Dates: start: 20051122, end: 20051124
  22. PREDNISOLONE TAB [Suspect]
     Dosage: SEE IMAGE
     Route: 048
     Dates: start: 20051125, end: 20051127
  23. PREDNISOLONE TAB [Suspect]
     Dosage: SEE IMAGE
     Route: 048
     Dates: start: 20051128, end: 20051211
  24. PREDNISOLONE TAB [Suspect]
     Dosage: SEE IMAGE
     Route: 048
     Dates: start: 20051212, end: 20051212
  25. PREDNISOLONE TAB [Suspect]
     Dosage: SEE IMAGE
     Route: 048
     Dates: start: 20051213, end: 20051214
  26. PREDNISOLONE TAB [Suspect]
     Dosage: SEE IMAGE
     Route: 048
     Dates: start: 20051215, end: 20051217
  27. PREDNISOLONE TAB [Suspect]
     Dosage: SEE IMAGE
     Route: 048
     Dates: start: 20051218, end: 20060110
  28. PREDNISOLONE TAB [Suspect]
     Dosage: SEE IMAGE
     Route: 048
     Dates: start: 20060112, end: 20060208
  29. PREDNISOLONE TAB [Suspect]
     Dosage: SEE IMAGE
     Route: 048
     Dates: start: 20060210, end: 20060226
  30. PREDNISOLONE TAB [Suspect]
     Dosage: SEE IMAGE
     Route: 048
     Dates: start: 20060227, end: 20060301
  31. PREDNISOLONE TAB [Suspect]
     Dosage: SEE IMAGE
     Route: 048
     Dates: start: 20060302
  32. FUTHAN(NAFAMOSTAT MESILATE) INJECTION [Suspect]
     Dosage: 100 MG
     Dates: start: 20051115, end: 20051117
  33. SOLU-MEDROL [Suspect]
     Indication: RENAL TRANSPLANT
     Dosage: SEE IMAGE
     Dates: start: 20051115, end: 20051115
  34. SOLU-MEDROL [Suspect]
     Indication: RENAL TRANSPLANT
     Dosage: SEE IMAGE
     Dates: start: 20051116, end: 20051116
  35. SOLU-MEDROL [Suspect]
     Indication: RENAL TRANSPLANT
     Dosage: SEE IMAGE
     Dates: start: 20051117, end: 20051117
  36. SOLU-MEDROL [Suspect]
     Indication: RENAL TRANSPLANT
     Dosage: SEE IMAGE
     Dates: start: 20051119, end: 20051119
  37. SOLU-MEDROL [Suspect]
     Indication: RENAL TRANSPLANT
     Dosage: SEE IMAGE
     Dates: start: 20051120, end: 20051120
  38. SOLU-MEDROL [Suspect]
     Indication: RENAL TRANSPLANT
     Dosage: SEE IMAGE
     Dates: start: 20051124, end: 20051126
  39. SOLU-MEDROL [Suspect]
     Indication: RENAL TRANSPLANT
     Dosage: SEE IMAGE
     Dates: start: 20051127, end: 20051127
  40. SOLU-MEDROL [Suspect]
     Indication: RENAL TRANSPLANT
     Dosage: SEE IMAGE
     Dates: start: 20051201, end: 20051202
  41. RITUXIMAB (RITUXIMAB) INJECTION [Concomitant]
  42. CELLCEPT [Concomitant]
  43. SIMULECT [Concomitant]
  44. IMMUNOGLOBULIN HUMAN NORMAL (IMMUNOGLOBULIN HUMAN NORMAL) INJECTION [Concomitant]
  45. ADALAT [Concomitant]
  46. ADALAT L TABLET [Concomitant]
  47. ELIETEN (METOCLOPRAMIDE) TABLET [Concomitant]
  48. CALTAN (LACIDIPINE) TABLET [Concomitant]
  49. DOXAZOSIN MESYLATE [Concomitant]
  50. CEFDINIR [Concomitant]
  51. SENNARIDE (SENNOSIDE A+B) TABLET [Concomitant]
  52. SOSEGON (PENTAZOCINE LACTATE) TABLET [Concomitant]
  53. SOSEGON (PENTAZOCIN) INJECTION [Concomitant]
  54. LANSOPRAZOLE [Concomitant]
  55. TOYOFAROL (ALFACALCIDOL) CAPSULE [Concomitant]
  56. NIVADIL (NILVADIPINE) TABLET [Concomitant]
  57. BAKTAR (SULFAMETHOXAZOLE, TRIMETHOPRIM) TABLET [Concomitant]
  58. PARIET (RABEPRAZOLE SODIUM) TABLET [Concomitant]
  59. HALCION [Concomitant]
  60. FUNGIZOONE SYRUP [Concomitant]
  61. FERROFIEL (FERROUS SODIUM CITRATE) TABLET [Concomitant]
  62. PROCYLIN (BERAPROST SODIUM) TABLET [Concomitant]
  63. ZOLPIDEM TARTRATE [Concomitant]
  64. WARFARIN (WARFARIN) TABLET [Concomitant]
  65. LASIX [Concomitant]
  66. LOBU (LOXOPROFEN SODIUM) TABLET [Concomitant]
  67. ATARAX-P (HYDROXYZINE  HYDROCHLORIDE) INJECTION [Concomitant]
  68. CATABON (DOPAMINE HYDROCHLORIDE) INJECTION [Concomitant]
  69. CALCICOL (CALCIUM GLUCONATE) INJECTION [Concomitant]
  70. XYLOCAINE [Concomitant]
  71. SPANIDIN (GUSPERIMUS HYDROCHLORIDE) INJECTION [Concomitant]
  72. SOLU-CORTEF (HYDROCORTISONE SODIUM SUCCINATE) INJECTION [Concomitant]
  73. NEUTROGIN (LENOGRASTIM) INJECTION [Concomitant]
  74. FENTANEST (FENTANYL CITRATE) INJECTION [Concomitant]
  75. PRIMPERAN (METOCLOPRAMIDE) INJECTION [Concomitant]
  76. PERDIPINE (NICARDIPINE) INJECTION [Concomitant]
  77. PENTICILLIN (PIPERACILLIN SODIUM) INJECTION [Concomitant]
  78. LASIX (FUROSEMIDE) INJECTION [Concomitant]
  79. LINTON (HALOPERIDOL) INJECTION [Concomitant]
  80. CEFAMEZIN (CEFAZOLIN) INJECTION [Concomitant]
  81. GLOVENIN (IMMUNOGLOBULIN HUMAN NORMAL) INJECTION [Concomitant]
  82. ALBUMIN (ALBUMIN HUMAN) INJECTION [Concomitant]
  83. NOVOLIN R (INSULIN HUMAN) INJECTION [Concomitant]
  84. HEPARIN NA INJECTION [Concomitant]

REACTIONS (5)
  - CYTOMEGALOVIRUS INFECTION [None]
  - DIABETES MELLITUS [None]
  - HAEMODIALYSIS [None]
  - PELVIC HAEMATOMA OBSTETRIC [None]
  - TRANSPLANT REJECTION [None]
